FAERS Safety Report 8581365 (Version 3)
Quarter: 2014Q1

REPORT INFORMATION
  Report Type: Spontaneous
  Country: US (occurrence: US)
  Receive Date: 20120525
  Receipt Date: 20140103
  Transmission Date: 20141002
  Serious: Yes (Death, Hospitalization)
  Sender: FDA-Public Use
  Company Number: US-B.I. PHARMACEUTICALS,INC./RIDGEFIELD-2012-BP-12362BP

PATIENT
  Age: 80 Year
  Sex: Female
  Weight: 52.1 kg

DRUGS (5)
  1. PRADAXA [Suspect]
     Indication: ATRIAL FIBRILLATION
     Dosage: 300 MG
     Route: 048
     Dates: start: 20110606, end: 20111228
  2. HCTZ [Concomitant]
  3. METOPROLOL [Concomitant]
  4. SYNTHROID [Concomitant]
     Dosage: 175 MCG
     Route: 048
  5. SIMVASTATIN [Concomitant]
     Dosage: 10 MG
     Route: 048

REACTIONS (5)
  - Haemorrhage intracranial [Fatal]
  - Fall [Unknown]
  - Head injury [Unknown]
  - Laceration [Unknown]
  - Pelvic fracture [Unknown]
